FAERS Safety Report 13504104 (Version 2)
Quarter: 2017Q2

REPORT INFORMATION
  Report Type: Report from Study
  Country: None (occurrence: GT)
  Receive Date: 20170502
  Receipt Date: 20170627
  Transmission Date: 20170830
  Serious: Yes (Life-Threatening, Hospitalization, Other)
  Sender: FDA-Public Use
  Company Number: GT-ABBVIE-17P-069-1959182-00

PATIENT
  Age: 45 Year
  Sex: Male

DRUGS (1)
  1. ZEMPLAR [Suspect]
     Active Substance: PARICALCITOL
     Indication: HYPERPARATHYROIDISM SECONDARY
     Route: 042
     Dates: start: 20160301

REACTIONS (9)
  - Hypotension [Recovered/Resolved with Sequelae]
  - Neuropathy peripheral [Recovered/Resolved with Sequelae]
  - Mobility decreased [Recovered/Resolved with Sequelae]
  - Pain [Recovered/Resolved with Sequelae]
  - Device related infection [Unknown]
  - Arteriovenous fistula site complication [Recovered/Resolved with Sequelae]
  - Catheter removal [Unknown]
  - Arteriovenous fistula site complication [Recovered/Resolved with Sequelae]
  - Catheter site pain [Recovered/Resolved with Sequelae]

NARRATIVE: CASE EVENT DATE: 201704
